FAERS Safety Report 10496375 (Version 2)
Quarter: 2014Q4

REPORT INFORMATION
  Report Type: Report from Study
  Country: None (occurrence: CN)
  Receive Date: 20141003
  Receipt Date: 20141003
  Transmission Date: 20150528
  Serious: Yes (Death, Hospitalization, Disabling)
  Sender: FDA-Public Use
  Company Number: CN-CELGENE-035-21660-14023164

PATIENT
  Age: 75 Year
  Sex: Male
  Weight: 67 kg

DRUGS (3)
  1. ABRAXANE [Suspect]
     Active Substance: PACLITAXEL
     Indication: NASOPHARYNGEAL CANCER
     Route: 041
     Dates: start: 20130729
  2. CISPLATIN. [Suspect]
     Active Substance: CISPLATIN
     Indication: NASOPHARYNGEAL CANCER
     Dosage: 75 MILLIGRAM/SQ. METER
     Route: 065
     Dates: start: 20130729
  3. ABRAXANE [Suspect]
     Active Substance: PACLITAXEL
     Route: 041

REACTIONS (1)
  - Cerebral infarction [Fatal]

NARRATIVE: CASE EVENT DATE: 20131119
